FAERS Safety Report 17773005 (Version 1)
Quarter: 2020Q2

REPORT INFORMATION
  Report Type: Spontaneous
  Country: US (occurrence: US)
  Receive Date: 20200512
  Receipt Date: 20200512
  Transmission Date: 20200714
  Serious: Yes (Other)
  Sender: FDA-Public Use
  Company Number: US-TEVA-2020-US-1233012

PATIENT
  Sex: Female

DRUGS (2)
  1. DESVENLAFAXINE ACTAVIS [Suspect]
     Active Substance: DESVENLAFAXINE
     Indication: MAJOR DEPRESSION
     Dosage: 50 MILLIGRAM DAILY; 50MG ONCE A DAY BY MOUTH
     Route: 048
  2. DESVENLAFAXINE ACTAVIS [Suspect]
     Active Substance: DESVENLAFAXINE
     Indication: POST-TRAUMATIC STRESS DISORDER

REACTIONS (5)
  - Mood swings [Unknown]
  - Insomnia [Unknown]
  - Irritability [Unknown]
  - Hallucination, visual [Unknown]
  - Anger [Unknown]
